FAERS Safety Report 9508537 (Version 2)
Quarter: 2013Q3

REPORT INFORMATION
  Report Type: Spontaneous
  Country: US (occurrence: US)
  Receive Date: 20130909
  Receipt Date: 20130926
  Transmission Date: 20140515
  Serious: Yes (Hospitalization, Other)
  Sender: FDA-Public Use
  Company Number: US-PFIZER INC-2013256487

PATIENT
  Age: 86 Year
  Sex: Female
  Weight: 75.28 kg

DRUGS (2)
  1. LIPITOR [Suspect]
     Dosage: 20MG DAILY
  2. EFFEXOR XR [Suspect]
     Dosage: 75MG DAILY

REACTIONS (3)
  - Dyspnoea [Recovered/Resolved]
  - Cerebrovascular accident [Recovered/Resolved]
  - Speech disorder [Recovered/Resolved]
